FAERS Safety Report 11393408 (Version 2)
Quarter: 2015Q4

REPORT INFORMATION
  Report Type: Spontaneous
  Country: JP (occurrence: JP)
  Receive Date: 20150818
  Receipt Date: 20151012
  Transmission Date: 20160304
  Serious: Yes (Death, Other)
  Sender: FDA-Public Use
  Company Number: JP-BRISTOL-MYERS SQUIBB COMPANY-BMS-2015-046876

PATIENT
  Age: 81 Year
  Sex: Male
  Weight: 74 kg

DRUGS (8)
  1. EPADEL                             /01682401/ [Concomitant]
     Active Substance: ICOSAPENT
     Indication: PRODUCT USED FOR UNKNOWN INDICATION
     Route: 065
  2. NEXIUM [Concomitant]
     Active Substance: ESOMEPRAZOLE MAGNESIUM
     Indication: PRODUCT USED FOR UNKNOWN INDICATION
     Route: 065
  3. LIPITOR [Concomitant]
     Active Substance: ATORVASTATIN CALCIUM
     Indication: PRODUCT USED FOR UNKNOWN INDICATION
     Route: 065
  4. PANALDINE [Suspect]
     Active Substance: TICLOPIDINE HYDROCHLORIDE
     Indication: PRODUCT USED FOR UNKNOWN INDICATION
     Dosage: 100 MG, BID
     Route: 048
     Dates: end: 20140406
  5. SLONNON HI [Concomitant]
     Indication: DIABETES MELLITUS
     Route: 065
  6. ELIQUIS [Suspect]
     Active Substance: APIXABAN
     Indication: CEREBROVASCULAR ACCIDENT PROPHYLAXIS
     Dosage: 5 MG, BID
     Route: 048
     Dates: start: 20140403, end: 20140406
  7. BAYASPIRIN [Suspect]
     Active Substance: ASPIRIN
     Indication: PRODUCT USED FOR UNKNOWN INDICATION
     Dosage: 100 MG, QD
     Route: 048
     Dates: end: 20140406
  8. AMARYL [Concomitant]
     Active Substance: GLIMEPIRIDE
     Indication: PRODUCT USED FOR UNKNOWN INDICATION
     Route: 065

REACTIONS (2)
  - Arrhythmia [Fatal]
  - Gastrointestinal haemorrhage [Fatal]

NARRATIVE: CASE EVENT DATE: 201404
